FAERS Safety Report 16290005 (Version 1)
Quarter: 2019Q2

REPORT INFORMATION
  Report Type: Spontaneous
  Country: CA (occurrence: CA)
  Receive Date: 20190509
  Receipt Date: 20190509
  Transmission Date: 20190711
  Serious: Yes (Other)
  Sender: FDA-Public Use
  Company Number: CA-BAYER-2019-087604

PATIENT
  Age: 41 Year
  Sex: Female

DRUGS (10)
  1. NUCYNTA [Suspect]
     Active Substance: TAPENTADOL HYDROCHLORIDE
  2. BUPROPION. [Suspect]
     Active Substance: BUPROPION
  3. METHADONE [Suspect]
     Active Substance: METHADONE HYDROCHLORIDE
  4. MORPHINE SULFATE. [Suspect]
     Active Substance: MORPHINE SULFATE
  5. NAPROXEN SODIUM ({= 220 MG) [Suspect]
     Active Substance: NAPROXEN SODIUM
     Indication: PAIN
     Dosage: UNK
  6. ACETAMINOPHEN AND CODEINE [Suspect]
     Active Substance: ACETAMINOPHEN\CODEINE PHOSPHATE
     Indication: PAIN
  7. NAPROXEN SODIUM ({= 220 MG) [Suspect]
     Active Substance: NAPROXEN SODIUM
     Indication: NEURALGIA
  8. ACETAMINOPHEN AND CODEINE [Suspect]
     Active Substance: ACETAMINOPHEN\CODEINE PHOSPHATE
     Indication: NEURALGIA
  9. HYDROMORPHONE [Suspect]
     Active Substance: HYDROMORPHONE
  10. CARBAMAZEPINE. [Suspect]
     Active Substance: CARBAMAZEPINE

REACTIONS (2)
  - Drug ineffective [Recovered/Resolved]
  - Drug intolerance [Recovered/Resolved]
